FAERS Safety Report 20608162 (Version 1)
Quarter: 2022Q1

REPORT INFORMATION
  Report Type: Spontaneous
  Country: US (occurrence: None)
  Receive Date: 20220317
  Receipt Date: 20220317
  Transmission Date: 20220423
  Serious: Yes (Other)
  Sender: FDA-Public Use
  Company Number: None

PATIENT
  Age: 67 Year
  Sex: Female
  Weight: 95.1 kg

DRUGS (7)
  1. ACTEMRA [Suspect]
     Active Substance: TOCILIZUMAB
     Indication: COVID-19
     Dosage: OTHER FREQUENCY : ONE TIME;?
     Route: 040
     Dates: start: 20220313, end: 20220313
  2. FAMOTIDINE [Concomitant]
     Active Substance: FAMOTIDINE
     Dates: start: 20220312, end: 20220316
  3. DOCUSATE [Concomitant]
     Active Substance: DOCUSATE
     Dates: start: 20220312, end: 20220316
  4. DEXAMETHASONE [Concomitant]
     Active Substance: DEXAMETHASONE
     Dates: start: 20220313, end: 20220316
  5. ENOXAPARIN [Concomitant]
     Active Substance: ENOXAPARIN
     Dates: start: 20220313, end: 20220314
  6. APIXABAN [Concomitant]
     Active Substance: APIXABAN
     Dates: start: 20220314, end: 20220316
  7. HYDROXYZINE [Concomitant]
     Active Substance: HYDROXYZINE HYDROCHLORIDE
     Dates: start: 20220314, end: 20220314

REACTIONS (2)
  - Alanine aminotransferase increased [None]
  - Liver function test increased [None]

NARRATIVE: CASE EVENT DATE: 20220317
